FAERS Safety Report 7292484-9 (Version None)
Quarter: 2011Q1

REPORT INFORMATION
  Report Type: 
  Country: None (occurrence: None)
  Receive Date: 20110209
  Receipt Date: 20110209
  Transmission Date: 20110831
  Serious: Yes (Other)
  Sender: FDA-Public Use
  Company Number: None

PATIENT
  Age: 72 Year
  Sex: Male

DRUGS (11)
  1. PROAIR HFA [Concomitant]
  2. GLIPIZIDE [Concomitant]
  3. HYDROCODONE BITARTRATE + ACETAMINOPHEN [Concomitant]
  4. HYDROMORPHONE [Concomitant]
  5. QVAR 40 [Concomitant]
  6. REVLIMID [Suspect]
     Indication: MULTIPLE MYELOMA
     Dosage: REVLIMID 25 MG DAILY ORALLY
     Route: 048
     Dates: start: 20101208, end: 20110120
  7. METFORMIN HCL [Concomitant]
  8. FISH OIL [Concomitant]
  9. TEMAZEPAM [Concomitant]
  10. ALPRAZOLAM [Concomitant]
  11. DOCUSATE [Concomitant]

REACTIONS (2)
  - RASH GENERALISED [None]
  - RASH PRURITIC [None]
